FAERS Safety Report 6267589-1 (Version None)
Quarter: 2009Q3

REPORT INFORMATION
  Report Type: 
  Country: None (occurrence: None)
  Receive Date: 20090710
  Receipt Date: 20090708
  Transmission Date: 20100115
  Serious: Yes (Death, Hospitalization)
  Sender: FDA-Public Use
  Company Number: SPV1-2009-01404

PATIENT
  Age: 52 Year
  Sex: Male

DRUGS (1)
  1. FOSRENOL [Suspect]
     Dosage: UNK, UNK, ORAL
     Route: 048
     Dates: start: 20090608, end: 20090704

REACTIONS (6)
  - CONCOMITANT DISEASE AGGRAVATED [None]
  - ILEUS [None]
  - INTESTINAL HAEMORRHAGE [None]
  - MEDICATION RESIDUE [None]
  - SHOCK HAEMORRHAGIC [None]
  - WRONG TECHNIQUE IN DRUG USAGE PROCESS [None]
